FAERS Safety Report 6552317-2 (Version None)
Quarter: 2010Q1

REPORT INFORMATION
  Report Type: 
  Country: None (occurrence: None)
  Receive Date: 20100126
  Receipt Date: 20100119
  Transmission Date: 20100710
  Serious: Yes (Hospitalization)
  Sender: FDA-Public Use
  Company Number: US-GENENTECH-297106

PATIENT
  Age: 72 Year
  Sex: Male

DRUGS (1)
  1. ACTIVASE [Suspect]
     Indication: ISCHAEMIC STROKE
     Dosage: 55 ML, UNK
     Dates: start: 20091119

REACTIONS (1)
  - DRUG ADMINISTRATION ERROR [None]
